FAERS Safety Report 17359049 (Version 1)
Quarter: 2020Q1

REPORT INFORMATION
  Report Type: Spontaneous
  Country: LV (occurrence: LV)
  Receive Date: 20200202
  Receipt Date: 20200202
  Transmission Date: 20200409
  Serious: Yes (Other)
  Sender: FDA-Public Use
  Company Number: LV-TEVA-2020-LV-1177316

PATIENT
  Age: 29 Year
  Sex: Female
  Weight: 72 kg

DRUGS (5)
  1. PULMICORT 0,5 MG/ML SUSPENSIJA IZSMIDZINASANAI [Concomitant]
     Indication: COUGH
     Route: 055
     Dates: start: 20191227, end: 20191228
  2. SUMAMED 500 MG APVALKOTAS TABLETES [Suspect]
     Active Substance: AZITHROMYCIN
     Indication: PERTUSSIS
     Dosage: 500 MG
     Route: 048
     Dates: start: 20200103, end: 20200105
  3. VENTOLIN 5 MG/ML SKIDUMS IZSMIDZINASANAI [Concomitant]
     Route: 055
     Dates: start: 20191227, end: 20191228
  4. XYZAL 5 MG APVALKOTAS TABLETES [Concomitant]
     Indication: PRURITUS
     Dosage: 5 MG
     Route: 048
     Dates: start: 20200104
  5. XYZAL 5 MG APVALKOTAS TABLETES [Concomitant]
     Indication: RASH

REACTIONS (4)
  - Paraesthesia oral [Not Recovered/Not Resolved]
  - Rash [Recovering/Resolving]
  - Rash pruritic [Recovering/Resolving]
  - Dry skin [Recovering/Resolving]

NARRATIVE: CASE EVENT DATE: 20200104
